FAERS Safety Report 5377713-0 (Version None)
Quarter: 2007Q3

REPORT INFORMATION
  Report Type: 
  Country: None (occurrence: None)
  Receive Date: 20070703
  Receipt Date: 20070702
  Transmission Date: 20080115
  Serious: Yes (Other)
  Sender: FDA-Public Use
  Company Number: TH-BOEHRINGER INGELHEIM PHARMACEUTICALS, INC.-2007-DE-03785GD

PATIENT
  Sex: Female

DRUGS (16)
  1. DIPYRIDAMOLE [Suspect]
     Indication: THROMBOTIC MICROANGIOPATHY
  2. CYCLOPHOSPHAMIDE [Suspect]
     Indication: NON-HODGKIN'S LYMPHOMA STAGE IV
  3. CYCLOPHOSPHAMIDE [Suspect]
     Indication: BONE MARROW CONDITIONING REGIMEN
  4. METHOTREXATE [Suspect]
     Indication: NON-HODGKIN'S LYMPHOMA STAGE IV
  5. METHOTREXATE [Suspect]
     Route: 037
  6. DEXAMETHASONE 0.5MG TAB [Suspect]
     Indication: NON-HODGKIN'S LYMPHOMA STAGE IV
  7. HYDROCORTISONE [Suspect]
     Indication: NON-HODGKIN'S LYMPHOMA STAGE IV
     Route: 037
  8. PREDNISOLONE [Suspect]
     Indication: NON-HODGKIN'S LYMPHOMA STAGE IV
  9. PREDNISOLONE [Suspect]
     Indication: THROMBOTIC MICROANGIOPATHY
     Dosage: 6 MG/KG/D, AT 7 WEEKS DOSAGE WAS TAPERED
  10. IFOSFAMIDE [Suspect]
     Indication: NON-HODGKIN'S LYMPHOMA STAGE IV
  11. ETOPOSIDE [Suspect]
     Indication: NON-HODGKIN'S LYMPHOMA STAGE IV
  12. CYTARABINE [Suspect]
     Indication: NON-HODGKIN'S LYMPHOMA STAGE IV
  13. CYTARABINE [Suspect]
     Indication: BONE MARROW CONDITIONING REGIMEN
     Route: 037
  14. CYTARABINE [Suspect]
  15. ADRIAMYCIN PFS [Suspect]
     Indication: NON-HODGKIN'S LYMPHOMA STAGE IV
  16. EPOGEN [Concomitant]
     Route: 058

REACTIONS (5)
  - ANAEMIA [None]
  - FEBRILE NEUTROPENIA [None]
  - NON-HODGKIN'S LYMPHOMA RECURRENT [None]
  - PROTEINURIA [None]
  - THROMBOCYTOPENIA [None]
